FAERS Safety Report 17079692 (Version 1)
Quarter: 2019Q4

REPORT INFORMATION
  Report Type: Spontaneous
  Country: US (occurrence: US)
  Receive Date: 20191029
  Receipt Date: 20191029
  Transmission Date: 20200122
  Serious: No
  Sender: FDA-Public Use
  Company Number: None

PATIENT
  Age: 64 Year
  Sex: Female

DRUGS (1)
  1. ENBREL [Suspect]
     Active Substance: ETANERCEPT
     Indication: RHEUMATOID ARTHRITIS
     Route: 058
     Dates: start: 20170728, end: 20190930

REACTIONS (5)
  - Insurance issue [None]
  - Headache [None]
  - Chest pain [None]
  - Night sweats [None]
  - Therapy cessation [None]

NARRATIVE: CASE EVENT DATE: 201708
